FAERS Safety Report 7777684-3 (Version None)
Quarter: 2011Q3

REPORT INFORMATION
  Report Type: 
  Country: None (occurrence: None)
  Receive Date: 20110926
  Receipt Date: 20110919
  Transmission Date: 20111222
  Serious: Yes (Death, Other)
  Sender: FDA-Public Use
  Company Number: US-BAYER-200937387NA

PATIENT
  Age: 65 Year
  Sex: Female
  Weight: 72.562 kg

DRUGS (25)
  1. TRASYLOL [Suspect]
     Indication: CARDIAC OPERATION
     Route: 042
     Dates: start: 20030911
  2. PHENYLEPHRINE HCL [Concomitant]
     Dosage: 0.1 MG, UNK
     Route: 042
     Dates: start: 20030911
  3. SPIRONOLACTONE [Concomitant]
     Dosage: 25 MG, UNK
     Route: 048
  4. COREG [Concomitant]
  5. KEITON [Concomitant]
  6. LIDOCAINE [Concomitant]
     Dosage: 100 MG, UNK
     Route: 042
     Dates: start: 20030911
  7. HEPARIN [Concomitant]
     Dosage: 250 MG, UNK
     Route: 042
     Dates: start: 20030911
  8. PROTAMINE [Concomitant]
     Dosage: 250 MG, UNK
     Route: 042
     Dates: start: 20030911
  9. LISINOPRIL [Concomitant]
  10. ZETIA [Concomitant]
  11. CELEBREX [Concomitant]
     Dosage: 200 Q/ DAILY
  12. TRASYLOL [Suspect]
     Indication: AORTIC VALVE REPLACEMENT
  13. PROPRANOLOL [Concomitant]
     Dosage: 40 MG, BID
     Route: 048
  14. DOPAMINE HCL [Concomitant]
     Dosage: DRIP
     Route: 042
     Dates: start: 20030911
  15. ALLOPURINOL [Concomitant]
     Dosage: 300 MG, UNK
     Route: 048
  16. UNIVASC [Concomitant]
     Dosage: 15 MG, QD
     Route: 048
  17. VANCOMYCIN [Concomitant]
     Dosage: 1 G, UNK
     Route: 042
     Dates: start: 20030911
  18. VERSED [Concomitant]
     Dosage: UNK
     Route: 042
     Dates: start: 20030911
  19. TRASYLOL [Suspect]
     Indication: MITRAL VALVE REPLACEMENT
  20. LANOXIN [Concomitant]
     Dosage: 0.125 MG, QD
     Route: 048
  21. NORVASC [Concomitant]
     Dosage: 5 MG, QD
     Route: 048
  22. TRIDIL [Concomitant]
     Dosage: DRIP
     Route: 042
     Dates: start: 20030911
  23. EPINEPHRINE [Concomitant]
     Dosage: DRIP
     Route: 042
     Dates: start: 20030911
  24. AMIODARONE HCL [Concomitant]
  25. TRAZODONE HYDROCHLORIDE [Concomitant]

REACTIONS (5)
  - INJURY [None]
  - PAIN [None]
  - UNEVALUABLE EVENT [None]
  - RENAL FAILURE [None]
  - DEATH [None]
